FAERS Safety Report 10460922 (Version 1)
Quarter: 2014Q3

REPORT INFORMATION
  Report Type: Spontaneous
  Country: IT (occurrence: None)
  Receive Date: 20140916
  Receipt Date: 20140916
  Transmission Date: 20150326
  Serious: Yes (Hospitalization)
  Sender: FDA-Public Use
  Company Number: 2014COV00113

PATIENT
  Age: 76 Year
  Sex: Female

DRUGS (1)
  1. HYDROXYCHLOROQUINE [Suspect]
     Active Substance: HYDROXYCHLOROQUINE
     Indication: DERMATOMYOSITIS

REACTIONS (3)
  - Pyrexia [None]
  - Drug reaction with eosinophilia and systemic symptoms [None]
  - Hepatic function abnormal [None]
